FAERS Safety Report 8947842 (Version 2)
Quarter: 2012Q4

REPORT INFORMATION
  Report Type: Spontaneous
  Country: US (occurrence: None)
  Receive Date: 20121127
  Receipt Date: 20121219
  Transmission Date: 20130627
  Serious: Yes (Death, Other)
  Sender: FDA-Public Use
  Company Number: 2012SGN00513

PATIENT
  Age: 72 Year
  Sex: Female
  Weight: 73.6 kg

DRUGS (1)
  1. ADCETRIS (BRENTUXIMAB VEDOTIN) INJECTION [Suspect]
     Indication: HODGKIN^S DISEASE RECURRENT
     Route: 042
     Dates: start: 20121110, end: 20121110

REACTIONS (1)
  - Disseminated intravascular coagulation [None]
